FAERS Safety Report 16743889 (Version 1)
Quarter: 2019Q3

REPORT INFORMATION
  Report Type: Spontaneous
  Country: CN (occurrence: CN)
  Receive Date: 20190827
  Receipt Date: 20190827
  Transmission Date: 20191005
  Serious: Yes (Hospitalization)
  Sender: FDA-Public Use
  Company Number: CN-SA-2019SA236459

PATIENT
  Age: 27 Year
  Sex: Male

DRUGS (4)
  1. RIFAMPICIN [Suspect]
     Active Substance: RIFAMPIN
     Indication: PULMONARY TUBERCULOSIS
     Dosage: 2 DF, QD
     Route: 048
     Dates: start: 20190618, end: 20190724
  2. LEVOFLOXACIN. [Suspect]
     Active Substance: LEVOFLOXACIN
     Indication: PULMONARY TUBERCULOSIS
     Dosage: 0.5 G, QD
     Route: 048
     Dates: start: 20190618, end: 20190724
  3. ETHAMBUTOL [Suspect]
     Active Substance: ETHAMBUTOL HYDROCHLORIDE
     Indication: PULMONARY TUBERCULOSIS
     Dosage: 0.75 G, QD
     Route: 048
     Dates: start: 20190618, end: 20190724
  4. ISONIAZID. [Suspect]
     Active Substance: ISONIAZID
     Indication: PULMONARY TUBERCULOSIS
     Dosage: 2 DF, QD
     Route: 048
     Dates: start: 20190618, end: 20190724

REACTIONS (8)
  - Decreased appetite [Unknown]
  - Pruritus [Unknown]
  - Nausea [Unknown]
  - Hepatic function abnormal [Unknown]
  - Rash [Unknown]
  - Off label use [Unknown]
  - Face oedema [Unknown]
  - Pyrexia [Unknown]

NARRATIVE: CASE EVENT DATE: 20190723
